FAERS Safety Report 10873956 (Version 1)
Quarter: 2015Q1

REPORT INFORMATION
  Report Type: Spontaneous
  Country: US (occurrence: US)
  Receive Date: 20150227
  Receipt Date: 20150227
  Transmission Date: 20150721
  Serious: No
  Sender: FDA-Public Use
  Company Number: US-TARO-2014TAR00439

PATIENT
  Sex: Female
  Weight: 58.96 kg

DRUGS (4)
  1. LAMOTRIGINE TABLETS 200 MG [Suspect]
     Active Substance: LAMOTRIGINE
     Indication: SEIZURE
     Dosage: 200 MG, 2X/DAY
     Route: 048
     Dates: start: 1998
  2. ESTRADIOL. [Concomitant]
     Active Substance: ESTRADIOL
  3. MEDROXYPROGESTERONE [Concomitant]
     Active Substance: MEDROXYPROGESTERONE
  4. ZOMIG [Concomitant]
     Active Substance: ZOLMITRIPTAN
     Dosage: UNK, AS NEEDED

REACTIONS (2)
  - Coeliac disease [Not Recovered/Not Resolved]
  - Vitamin B12 decreased [Not Recovered/Not Resolved]

NARRATIVE: CASE EVENT DATE: 2013
